FAERS Safety Report 7505621-5 (Version None)
Quarter: 2011Q2

REPORT INFORMATION
  Report Type: 
  Country: None (occurrence: None)
  Receive Date: 20110526
  Receipt Date: 20110519
  Transmission Date: 20111010
  Serious: Yes (Other)
  Sender: FDA-Public Use
  Company Number: DE-PFIZER INC-2011111956

PATIENT
  Age: 52 Year
  Sex: Male

DRUGS (4)
  1. EUTHYROX [Concomitant]
     Dosage: 100 AUG
  2. AMIODARONE HYDROCHLORIDE [Suspect]
     Indication: PRODUCT USED FOR UNKNOWN INDICATION
  3. CANDESARTAN [Concomitant]
  4. MARCUMAR [Concomitant]

REACTIONS (2)
  - BLOOD THYROID STIMULATING HORMONE INCREASED [None]
  - PULMONARY HYPERTENSION [None]
